FAERS Safety Report 7759767-7 (Version None)
Quarter: 2011Q3

REPORT INFORMATION
  Report Type: 
  Country: None (occurrence: None)
  Receive Date: 20110919
  Receipt Date: 20110915
  Transmission Date: 20111222
  Serious: Yes (Death, Hospitalization, Other)
  Sender: FDA-Public Use
  Company Number: PHHY2011US82145

PATIENT

DRUGS (1)
  1. PREDNISONE [Suspect]
     Indication: DERMATOMYOSITIS
     Dosage: 60 MG PER DAY

REACTIONS (9)
  - RESPIRATORY FAILURE [None]
  - SWELLING FACE [None]
  - COUGH [None]
  - PYREXIA [None]
  - RESPIRATORY ALKALOSIS [None]
  - DYSPNOEA [None]
  - ARTHRALGIA [None]
  - PNEUMOCYSTIS JIROVECI PNEUMONIA [None]
  - TACHYCARDIA [None]
